FAERS Safety Report 15930250 (Version 1)
Quarter: 2019Q1

REPORT INFORMATION
  Report Type: Spontaneous
  Country: US (occurrence: US)
  Receive Date: 20190207
  Receipt Date: 20190207
  Transmission Date: 20190417
  Serious: Yes (Other)
  Sender: FDA-Public Use
  Company Number: US-JNJFOC-20190133750

PATIENT
  Age: 65 Year
  Sex: Male
  Weight: 81.65 kg

DRUGS (4)
  1. ENTYVIO [Concomitant]
     Active Substance: VEDOLIZUMAB
     Indication: CROHN^S DISEASE
     Route: 065
  2. STELARA [Suspect]
     Active Substance: USTEKINUMAB
     Indication: CROHN^S DISEASE
     Route: 042
     Dates: start: 20181203, end: 20181203
  3. IRON [Concomitant]
     Active Substance: IRON
     Route: 065
  4. VITAMIN D [Concomitant]
     Active Substance: CHOLECALCIFEROL
     Route: 065

REACTIONS (1)
  - Anaphylactic shock [Recovered/Resolved]

NARRATIVE: CASE EVENT DATE: 20181203
